FAERS Safety Report 25457710 (Version 3)
Quarter: 2025Q4

REPORT INFORMATION
  Report Type: Spontaneous
  Country: EU (occurrence: EU)
  Receive Date: 20250619
  Receipt Date: 20251009
  Transmission Date: 20260118
  Serious: Yes (Other)
  Sender: JOHNSON AND JOHNSON
  Company Number: EU-JNJFOC-20250620593

PATIENT
  Sex: Female
  Weight: 40 kg

DRUGS (1)
  1. RYBREVANT [Suspect]
     Active Substance: AMIVANTAMAB-VMJW
     Indication: Non-small cell lung cancer
     Dosage: DOSE, STRENGTH 1050
     Route: 041

REACTIONS (2)
  - Erosive pustular dermatosis [Not Recovered/Not Resolved]
  - Dermatitis acneiform [Not Recovered/Not Resolved]
